FAERS Safety Report 12165864 (Version 2)
Quarter: 2016Q1

REPORT INFORMATION
  Report Type: Report from Study
  Country: US (occurrence: US)
  Receive Date: 20160309
  Receipt Date: 20160324
  Transmission Date: 20160526
  Serious: Yes (Death, Hospitalization)
  Sender: FDA-Public Use
  Company Number: US-MYLANLABS-2016M1008924

PATIENT

DRUGS (3)
  1. CLOZAPINE. [Suspect]
     Active Substance: CLOZAPINE
     Indication: DEMENTIA WITH LEWY BODIES
     Dosage: 12.5 MG, HS
  2. CLOZAPINE. [Suspect]
     Active Substance: CLOZAPINE
     Indication: OFF LABEL USE
  3. CLOZAPINE. [Suspect]
     Active Substance: CLOZAPINE
     Indication: DELIRIUM

REACTIONS (3)
  - Delirium [Unknown]
  - Drug ineffective for unapproved indication [Unknown]
  - Dementia with Lewy bodies [Fatal]
